FAERS Safety Report 4318731-0 (Version None)
Quarter: 2004Q1

REPORT INFORMATION
  Report Type: 
  Country: None (occurrence: None)
  Receive Date: 20040317
  Receipt Date: 20040317
  Transmission Date: 20041129
  Serious: Yes (Other)
  Sender: FDA-Public Use
  Company Number: None

PATIENT
  Sex: Male
  Weight: 33.1126 kg

DRUGS (1)
  1. AMPHETAMINE SALTS 30 MG 3 Q AM [Suspect]
     Indication: ATTENTION DEFICIT/HYPERACTIVITY DISORDER
     Dosage: 30 MG 3 Q AM ORAL
     Route: 048

REACTIONS (2)
  - ANOREXIA [None]
  - PHARMACEUTICAL PRODUCT COMPLAINT [None]
